FAERS Safety Report 17953211 (Version 2)
Quarter: 2020Q3

REPORT INFORMATION
  Report Type: Report from Study
  Country: BR (occurrence: BR)
  Receive Date: 20200627
  Receipt Date: 20200703
  Transmission Date: 20201103
  Serious: Yes (Other)
  Sender: FDA-Public Use
  Company Number: NVSC2020BR010107

PATIENT
  Age: 51 Year
  Sex: Female
  Weight: 72 kg

DRUGS (7)
  1. ZINC OXIDE. [Concomitant]
     Active Substance: ZINC OXIDE
     Indication: PRODUCT USED FOR UNKNOWN INDICATION
     Route: 065
  2. FULVESTRANT. [Concomitant]
     Active Substance: FULVESTRANT
     Indication: PRODUCT USED FOR UNKNOWN INDICATION
     Dosage: UNK
     Route: 065
  3. NISTATIN [Concomitant]
     Active Substance: NYSTATIN
     Indication: PRODUCT USED FOR UNKNOWN INDICATION
     Route: 065
  4. EXEMESTANE. [Concomitant]
     Active Substance: EXEMESTANE
     Indication: PRODUCT USED FOR UNKNOWN INDICATION
     Dosage: UNK
     Route: 065
  5. HIPOGLOS [Concomitant]
     Active Substance: LANOLIN\ZINC OXIDE
     Indication: PRODUCT USED FOR UNKNOWN INDICATION
     Route: 065
  6. ANASTROZOLE. [Suspect]
     Active Substance: ANASTROZOLE
     Indication: BREAST CANCER
     Dosage: 1 DF, QD
     Route: 048
     Dates: start: 201812, end: 201903
  7. ENTRESTO [Concomitant]
     Active Substance: SACUBITRIL\VALSARTAN
     Indication: PRODUCT USED FOR UNKNOWN INDICATION
     Dosage: UNK
     Route: 065

REACTIONS (19)
  - Pain [Not Recovered/Not Resolved]
  - Drug ineffective [Unknown]
  - Decreased immune responsiveness [Recovered/Resolved]
  - Aphthous ulcer [Recovered/Resolved]
  - Oedema blister [Recovering/Resolving]
  - Headache [Not Recovered/Not Resolved]
  - Joint swelling [Not Recovered/Not Resolved]
  - Metastases to skin [Unknown]
  - Arthralgia [Not Recovered/Not Resolved]
  - Skin wound [Recovering/Resolving]
  - Rash [Unknown]
  - Gait disturbance [Not Recovered/Not Resolved]
  - Cardiac failure [Not Recovered/Not Resolved]
  - Burning sensation [Recovering/Resolving]
  - Peripheral swelling [Not Recovered/Not Resolved]
  - Diarrhoea [Recovered/Resolved]
  - Skin abrasion [Recovered/Resolved]
  - Limb discomfort [Not Recovered/Not Resolved]
  - Fatigue [Not Recovered/Not Resolved]

NARRATIVE: CASE EVENT DATE: 20190108
